FAERS Safety Report 6469376-8 (Version None)
Quarter: 2009Q4

REPORT INFORMATION
  Report Type: 
  Country: None (occurrence: None)
  Receive Date: 20091203
  Receipt Date: 20081216
  Transmission Date: 20100525
  Serious: Yes (Other)
  Sender: FDA-Public Use
  Company Number: CA-ELI_LILLY_AND_COMPANY-CA200710000210

PATIENT
  Age: 43 Year
  Sex: Female

DRUGS (10)
  1. ZYPREXA ZYDIS [Suspect]
     Indication: POST-TRAUMATIC STRESS DISORDER
     Dosage: 5 MG, DAILY (1/D)
     Dates: start: 20070701, end: 20070919
  2. ZYPREXA ZYDIS [Suspect]
     Dosage: 5 MG, UNK
     Dates: start: 20070101, end: 20070101
  3. TRAZODONE HCL [Concomitant]
     Dates: start: 20070101, end: 20070101
  4. SEROQUEL [Concomitant]
     Dates: start: 20070101, end: 20070101
  5. RISPERIDONE [Concomitant]
     Dates: start: 20070101, end: 20070101
  6. RISPERIDONE [Concomitant]
     Dosage: 0.5 MG, EACH MORNING
  7. RISPERIDONE [Concomitant]
     Dosage: 1 MG, EACH EVENING
  8. VALPROIC ACID [Concomitant]
     Dosage: 300 MG, UNK
     Dates: start: 20070101, end: 20070101
  9. CLONAZEPAM [Concomitant]
     Dosage: 0.75 MG, UNK
     Dates: start: 20070101, end: 20070101
  10. EPIVAL [Concomitant]
     Dates: end: 20070822

REACTIONS (5)
  - CACHEXIA [None]
  - DEAFNESS TRANSITORY [None]
  - OEDEMA PERIPHERAL [None]
  - PLATELET COUNT DECREASED [None]
  - WHITE BLOOD CELL COUNT INCREASED [None]
